FAERS Safety Report 13410285 (Version 3)
Quarter: 2017Q3

REPORT INFORMATION
  Report Type: Spontaneous
  Country: US (occurrence: US)
  Receive Date: 20170406
  Receipt Date: 20170926
  Transmission Date: 20171127
  Serious: Yes (Hospitalization)
  Sender: FDA-Public Use
  Company Number: US-ASTRAZENECA-2017SE33704

PATIENT
  Age: 71 Year
  Sex: Female
  Weight: 68 kg

DRUGS (14)
  1. IPRATROPIUM BROMIDE AND ALBUTEROL SULFATE [Concomitant]
     Active Substance: ALBUTEROL SULFATE\IPRATROPIUM BROMIDE
     Indication: EMPHYSEMA
     Dosage: 0.5 MG/3 MG PER 3 ML, AS NEEDED
     Route: 055
     Dates: start: 201612
  2. TUDORZA PRESSAIR [Suspect]
     Active Substance: ACLIDINIUM BROMIDE
     Indication: CHRONIC OBSTRUCTIVE PULMONARY DISEASE
     Dosage: 400 MCG, ONE PUFF TWICE A DAY
     Route: 055
  3. COMBIVENT [Concomitant]
     Active Substance: ALBUTEROL SULFATE\IPRATROPIUM BROMIDE
     Indication: INHALATION THERAPY
     Dosage: 1 PUFF OF COMBIVENT 20/100MCG AS NEEDED
     Route: 055
     Dates: start: 2002
  4. SIMVASTATIN. [Concomitant]
     Active Substance: SIMVASTATIN
     Indication: BLOOD CHOLESTEROL ABNORMAL
     Dates: start: 2007
  5. D3 5000 [Concomitant]
     Indication: DYSPNOEA
     Dosage: DAILY
     Route: 048
  6. TUDORZA PRESSAIR [Suspect]
     Active Substance: ACLIDINIUM BROMIDE
     Indication: EMPHYSEMA
     Dosage: 400 MCG, ONE PUFF TWICE A DAY
     Route: 055
  7. ZANTAC [Concomitant]
     Active Substance: RANITIDINE HYDROCHLORIDE
     Indication: GASTROOESOPHAGEAL REFLUX DISEASE
     Route: 048
  8. LEVOTHYROXINE. [Concomitant]
     Active Substance: LEVOTHYROXINE
     Indication: THYROID DISORDER
     Route: 048
  9. METOPROLOL TARTRATE. [Concomitant]
     Active Substance: METOPROLOL TARTRATE
     Indication: HEART RATE
     Dates: start: 201709
  10. SYMBICORT [Suspect]
     Active Substance: BUDESONIDE\FORMOTEROL FUMARATE DIHYDRATE
     Indication: CHRONIC OBSTRUCTIVE PULMONARY DISEASE
     Dosage: 160/4.5 UG, 2 PUFFS TWICE DAILY
     Route: 055
  11. PROBIOTIC [Concomitant]
     Active Substance: PROBIOTICS NOS
     Indication: ABDOMINAL DISCOMFORT
     Dosage: DAILY
  12. D3 5000 [Concomitant]
     Indication: EMPHYSEMA
     Dosage: DAILY
     Route: 048
  13. D3 5000 [Concomitant]
     Indication: IMMUNE SYSTEM DISORDER
     Dosage: DAILY
     Route: 048
  14. IPRATROPIUM BROMIDE AND ALBUTEROL SULFATE [Concomitant]
     Active Substance: ALBUTEROL SULFATE\IPRATROPIUM BROMIDE
     Indication: CHRONIC OBSTRUCTIVE PULMONARY DISEASE
     Dosage: 0.5 MG/3 MG PER 3 ML, AS NEEDED
     Route: 055
     Dates: start: 201612

REACTIONS (10)
  - Chronic obstructive pulmonary disease [Unknown]
  - Thyroid disorder [Unknown]
  - Blood cholesterol increased [Unknown]
  - Device malfunction [Unknown]
  - Bronchitis [Unknown]
  - Intentional device misuse [Unknown]
  - Gastric disorder [Unknown]
  - Off label use [Unknown]
  - Memory impairment [Unknown]
  - Product use issue [Unknown]
